FAERS Safety Report 6048632-1 (Version None)
Quarter: 2009Q1

REPORT INFORMATION
  Report Type: 
  Country: None (occurrence: None)
  Receive Date: 20090121
  Receipt Date: 20090121
  Transmission Date: 20090719
  Serious: Yes (Hospitalization)
  Sender: FDA-Public Use
  Company Number: None

PATIENT
  Age: 51 Year
  Sex: Female
  Weight: 62.1428 kg

DRUGS (2)
  1. DEMADEX [Suspect]
     Indication: OEDEMA PERIPHERAL
     Dosage: DEMADEX BID PO
     Route: 048
  2. MAXZIDE [Suspect]
     Indication: HYPERTENSION
     Dosage: MAXZIDE DAILY PO
     Route: 048

REACTIONS (4)
  - HYPOTENSION [None]
  - HYPOVOLAEMIA [None]
  - RENAL FAILURE ACUTE [None]
  - SYNCOPE [None]
